FAERS Safety Report 5080757-X (Version None)
Quarter: 2006Q3

REPORT INFORMATION
  Report Type: 
  Country: None (occurrence: None)
  Receive Date: 20060809
  Receipt Date: 20060727
  Transmission Date: 20061208
  Serious: Yes (Hospitalization)
  Sender: FDA-Public Use
  Company Number: 2006092605

PATIENT
  Age: 70 Year
  Sex: Female

DRUGS (1)
  1. ZMAX [Suspect]
     Indication: OSTEOMYELITIS
     Dosage: (2 GRAM, 1 IN 1 WK), ORAL
     Route: 048

REACTIONS (2)
  - ABDOMINAL PAIN [None]
  - GASTRITIS [None]
